FAERS Safety Report 8244002-6 (Version None)
Quarter: 2012Q1

REPORT INFORMATION
  Report Type: 
  Country: None (occurrence: None)
  Receive Date: 20120309
  Receipt Date: 20101029
  Transmission Date: 20120608
  Serious: Yes (Disabling, Other)
  Sender: FDA-Public Use
  Company Number: PHHY2010US18735

PATIENT
  Age: 71 Year
  Sex: Male
  Weight: 81.6 kg

DRUGS (14)
  1. LYRICA [Concomitant]
  2. LISINOPRIL [Concomitant]
  3. BETHANECHOL [Concomitant]
  4. ASPIRIN [Concomitant]
  5. NEXIUM [Concomitant]
  6. LYRICA [Concomitant]
  7. METHOCARBAMOL [Concomitant]
  8. ZOCOR [Concomitant]
  9. BACLOFEN [Concomitant]
  10. DOXYCYCLIN (AMBROXOL HYDROCHLORIDE, DOXYCYCLINE HYCLATE) [Concomitant]
  11. PERCOCET [Concomitant]
  12. EXTAVIA [Suspect]
     Indication: MULTIPLE SCLEROSIS
     Dosage: 0.125 MG, QOD; 0.25 MG, QOD, SUBCUTANEOUS
     Route: 058
     Dates: start: 20100308
  13. VITAMIN B12 [Concomitant]
  14. BENZONATATE [Concomitant]

REACTIONS (13)
  - MUSCULAR WEAKNESS [None]
  - PRURITUS [None]
  - GAIT DISTURBANCE [None]
  - MULTIPLE SCLEROSIS RELAPSE [None]
  - HEADACHE [None]
  - INJECTION SITE ERYTHEMA [None]
  - PAIN [None]
  - BALANCE DISORDER [None]
  - OEDEMA PERIPHERAL [None]
  - INJECTION SITE SWELLING [None]
  - NERVE COMPRESSION [None]
  - BACK PAIN [None]
  - HYPOAESTHESIA [None]
